FAERS Safety Report 16451008 (Version 2)
Quarter: 2019Q2

REPORT INFORMATION
  Report Type: Spontaneous
  Country: DE (occurrence: DE)
  Receive Date: 20190619
  Receipt Date: 20190627
  Transmission Date: 20190711
  Serious: Yes (Hospitalization, Other)
  Sender: FDA-Public Use
  Company Number: DE-DSJP-DSE-2019-123029

PATIENT
  Sex: Female

DRUGS (1)
  1. LIXIANA [Suspect]
     Active Substance: EDOXABAN TOSYLATE
     Indication: ATRIAL FIBRILLATION
     Dosage: 30 MG, QD
     Route: 048

REACTIONS (4)
  - Peripheral vascular disorder [Unknown]
  - Paraesthesia [Unknown]
  - Syncope [Unknown]
  - Visual impairment [Unknown]
